FAERS Safety Report 9843036 (Version 1)
Quarter: 2014Q1

REPORT INFORMATION
  Report Type: Spontaneous
  Country: US (occurrence: US)
  Receive Date: 20140124
  Receipt Date: 20140124
  Transmission Date: 20141002
  Serious: Yes (Other)
  Sender: FDA-Public Use
  Company Number: US-US-EMD SERONO, INC.-7263810

PATIENT
  Age: 23 Year
  Sex: Female

DRUGS (1)
  1. REBIF [Suspect]
     Indication: PRODUCT USED FOR UNKNOWN INDICATION
     Route: 058
     Dates: start: 201009

REACTIONS (4)
  - Abortion spontaneous [Recovered/Resolved]
  - Depression [Not Recovered/Not Resolved]
  - Maternal exposure timing unspecified [Recovered/Resolved]
  - Treatment noncompliance [Not Recovered/Not Resolved]
